FAERS Safety Report 20662831 (Version 1)
Quarter: 2022Q2

REPORT INFORMATION
  Report Type: Spontaneous
  Country: US (occurrence: US)
  Receive Date: 20220401
  Receipt Date: 20220401
  Transmission Date: 20220721
  Serious: Yes (Other)
  Sender: FDA-Public Use
  Company Number: US-ALLERGAN-2210584US

PATIENT
  Sex: Male

DRUGS (1)
  1. VUITY [Suspect]
     Active Substance: PILOCARPINE HYDROCHLORIDE
     Indication: Presbyopia
     Dosage: 2 GTT
     Dates: start: 202203, end: 202203

REACTIONS (4)
  - Retinal tear [Recovered/Resolved]
  - Vitreous detachment [Recovering/Resolving]
  - Photopsia [Recovering/Resolving]
  - Vitreous floaters [Recovering/Resolving]

NARRATIVE: CASE EVENT DATE: 20220301
